FAERS Safety Report 15607755 (Version 1)
Quarter: 2018Q4

REPORT INFORMATION
  Report Type: Report from Study
  Country: KR (occurrence: KR)
  Receive Date: 20181112
  Receipt Date: 20181112
  Transmission Date: 20190205
  Serious: Yes (Death, Hospitalization)
  Sender: FDA-Public Use
  Company Number: KR-JNJFOC-20181000684

PATIENT
  Age: 75 Year
  Sex: Female
  Weight: 58 kg

DRUGS (7)
  1. SERMION [Concomitant]
     Active Substance: NICERGOLINE
     Route: 065
     Dates: start: 20171025
  2. CONCOR [Concomitant]
     Active Substance: BISOPROLOL FUMARATE
     Route: 065
     Dates: start: 20180312
  3. LEVOTHYROXINE. [Concomitant]
     Active Substance: LEVOTHYROXINE
     Dosage: 1.5 MCG/L
     Route: 065
     Dates: start: 20120717
  4. NOVASCABIN [Concomitant]
     Route: 065
     Dates: start: 20041124
  5. CALCIUM CARBONATE. [Concomitant]
     Active Substance: CALCIUM CARBONATE
     Route: 065
     Dates: start: 20170426
  6. RIVAROXABAN [Suspect]
     Active Substance: RIVAROXABAN
     Indication: PRODUCT USED FOR UNKNOWN INDICATION
     Route: 048
     Dates: start: 20180312
  7. LIVALO [Concomitant]
     Active Substance: PITAVASTATIN CALCIUM
     Route: 065
     Dates: start: 20061102

REACTIONS (3)
  - Dizziness [Fatal]
  - Cerebral infarction [Fatal]
  - Fracture [Fatal]

NARRATIVE: CASE EVENT DATE: 20180416
